FAERS Safety Report 9159659 (Version 4)
Quarter: 2013Q2

REPORT INFORMATION
  Report Type: Spontaneous
  Country: US (occurrence: US)
  Receive Date: 20130313
  Receipt Date: 20130527
  Transmission Date: 20140414
  Serious: Yes (Other)
  Sender: FDA-Public Use
  Company Number: US-PFIZER INC-2013081656

PATIENT
  Age: 64 Year
  Sex: Male

DRUGS (16)
  1. SUTENT [Suspect]
     Indication: RENAL CANCER
     Dosage: 50 MG, UNK
     Dates: start: 20130221
  2. SUTENT [Suspect]
     Dosage: 25 MG, UNK
     Dates: start: 20130221
  3. SUTENT [Suspect]
     Dosage: 2.5 MG, UNK
     Dates: start: 20130221
  4. CALCITRIOL [Concomitant]
     Dosage: UNK
  5. CALCIUM CITRATE [Concomitant]
     Dosage: UNK
  6. NOVOLOG FLEXPEN [Concomitant]
     Dosage: UNK
  7. LANTUS SOLOSTAR [Concomitant]
     Dosage: UNK
  8. OMEPRAZOLE [Concomitant]
     Dosage: UNK
  9. LEVOTHYROXINE SODIUM [Concomitant]
     Dosage: UNK
  10. PANTOPRAZOLE SODIUM [Concomitant]
     Dosage: UNK
  11. LOSARTAN POTASSIUM [Concomitant]
     Dosage: UNK
  12. PRAVASTATIN SODIUM [Concomitant]
     Dosage: UNK
  13. MAGNESIUM [Concomitant]
     Dosage: UNK
  14. TIMOLOL MALEATE [Concomitant]
     Dosage: UNK
  15. VITAMIN D3 [Concomitant]
     Dosage: UNK
  16. XALATAN [Concomitant]
     Dosage: UNK

REACTIONS (5)
  - Respiratory tract infection [Unknown]
  - Hypotension [Unknown]
  - Incontinence [Unknown]
  - Disease progression [Unknown]
  - Renal cancer [Unknown]
